FAERS Safety Report 4294558-3 (Version None)
Quarter: 2004Q1

REPORT INFORMATION
  Report Type: 
  Country: None (occurrence: None)
  Receive Date: 20040211
  Receipt Date: 20040203
  Transmission Date: 20041129
  Serious: Yes (Death)
  Sender: FDA-Public Use
  Company Number: A0496706A

PATIENT
  Age: 12 Year
  Sex: Female

DRUGS (1)
  1. PAXIL [Suspect]
     Indication: ILL-DEFINED DISORDER
     Dosage: ORAL
     Route: 048
     Dates: start: 20000101, end: 20010607

REACTIONS (8)
  - ABNORMAL BEHAVIOUR [None]
  - AGGRESSION [None]
  - APATHY [None]
  - COMPLETED SUICIDE [None]
  - INJURY ASPHYXIATION [None]
  - INSOMNIA [None]
  - RASH [None]
  - SKIN DISCOLOURATION [None]
